FAERS Safety Report 22091257 (Version 1)
Quarter: 2023Q1

REPORT INFORMATION
  Report Type: Spontaneous
  Country: NZ (occurrence: NZ)
  Receive Date: 20230314
  Receipt Date: 20230314
  Transmission Date: 20230417
  Serious: Yes (Other)
  Sender: FDA-Public Use
  Company Number: NZ-009507513-2303NZL003737

PATIENT
  Age: 72 Year
  Sex: Female

DRUGS (2)
  1. LAGEVRIO [Suspect]
     Active Substance: MOLNUPIRAVIR
     Dosage: UNK
  2. CEFACLOR [Concomitant]
     Active Substance: CEFACLOR

REACTIONS (1)
  - Pancreatitis [Unknown]
